FAERS Safety Report 8974783 (Version 1)
Quarter: 2012Q4

REPORT INFORMATION
  Report Type: Spontaneous
  Country: US (occurrence: None)
  Receive Date: 20121218
  Receipt Date: 20121218
  Transmission Date: 20130627
  Serious: Yes (Life-Threatening, Hospitalization, Disabling)
  Sender: FDA-Public Use
  Company Number: None

PATIENT
  Sex: Male
  Weight: 65.77 kg

DRUGS (5)
  1. MACRODANTIN [Suspect]
     Indication: UTI
     Dosage: 2x Oral - 047
     Route: 048
     Dates: start: 20120126, end: 20120202
  2. PRADAXA [Concomitant]
  3. TOPROL [Concomitant]
  4. GLIPIZIDE [Concomitant]
  5. IRON [Concomitant]

REACTIONS (10)
  - Acute hepatic failure [None]
  - Confusional state [None]
  - Somnolence [None]
  - Pyrexia [None]
  - Dysphonia [None]
  - Pneumothorax [None]
  - Asthenia [None]
  - Chest discomfort [None]
  - Unresponsive to stimuli [None]
  - Atrial fibrillation [None]
